FAERS Safety Report 12979149 (Version 21)
Quarter: 2017Q2

REPORT INFORMATION
  Report Type: Spontaneous
  Country: JP (occurrence: JP)
  Receive Date: 20161128
  Receipt Date: 20170519
  Transmission Date: 20170830
  Serious: Yes (Other)
  Sender: FDA-Public Use
  Company Number: JP-GLAXOSMITHKLINE-JP2016GSK168774

PATIENT
  Sex: Male

DRUGS (9)
  1. VOLTAREN [Suspect]
     Active Substance: DICLOFENAC SODIUM
     Indication: NECK PAIN
     Dosage: UNK
     Route: 048
  2. VOLTAREN [Suspect]
     Active Substance: DICLOFENAC SODIUM
     Indication: HEADACHE
     Dosage: UNK
     Route: 048
     Dates: start: 20161122
  3. ONBREZ [Suspect]
     Active Substance: INDACATEROL
     Dosage: UNK
     Dates: start: 20161117
  4. ULTIBRO [Suspect]
     Active Substance: GLYCOPYRRONIUM\INDACATEROL
     Indication: CHRONIC OBSTRUCTIVE PULMONARY DISEASE
     Dosage: UNK
  5. TAMIFLU [Suspect]
     Active Substance: OSELTAMIVIR PHOSPHATE
     Indication: INFLUENZA
  6. VOLTAREN [Suspect]
     Active Substance: DICLOFENAC SODIUM
     Indication: PAIN IN JAW
     Dosage: 25 MG, UNK
     Route: 048
  7. VOLTAREN [Suspect]
     Active Substance: DICLOFENAC SODIUM
     Dosage: UNK
     Route: 048
  8. ONBREZ [Suspect]
     Active Substance: INDACATEROL
     Indication: CHRONIC OBSTRUCTIVE PULMONARY DISEASE
     Dosage: 150 UG, UNK
     Route: 055
  9. MEPTIN [Concomitant]
     Active Substance: PROCATEROL HYDROCHLORIDE
     Dosage: UNK

REACTIONS (54)
  - Urinary retention [Unknown]
  - Gait disturbance [Unknown]
  - Abnormal behaviour [Unknown]
  - Myalgia [Unknown]
  - Road traffic accident [Unknown]
  - Enterocolitis [Unknown]
  - Neck pain [Unknown]
  - Product use issue [Unknown]
  - Skin papilloma [Unknown]
  - Blood creatinine decreased [Unknown]
  - Insomnia [Unknown]
  - Emphysema [Unknown]
  - Influenza [Unknown]
  - Dysphonia [Unknown]
  - Gallbladder pain [Unknown]
  - Throat irritation [Unknown]
  - Drug ineffective [Unknown]
  - Chest discomfort [Unknown]
  - Blood pressure increased [Unknown]
  - Chapped lips [Unknown]
  - Pain in extremity [Unknown]
  - Nasal discomfort [Unknown]
  - Arthralgia [Unknown]
  - Low density lipoprotein increased [Unknown]
  - White blood cell count increased [Unknown]
  - Tongue disorder [Unknown]
  - Glycosylated haemoglobin increased [Unknown]
  - Pyrexia [Unknown]
  - Lymphadenopathy [Unknown]
  - Neck pain [Recovered/Resolved]
  - Eosinophil count increased [Unknown]
  - Dysphonia [Recovered/Resolved]
  - Blood potassium increased [Unknown]
  - Jaw disorder [Unknown]
  - Cholelithiasis [Unknown]
  - Bronchitis [Unknown]
  - Spinal osteoarthritis [Unknown]
  - Diarrhoea [Unknown]
  - Pain in jaw [Unknown]
  - Blood triglycerides increased [Unknown]
  - Blood urea decreased [Unknown]
  - Facial pain [Unknown]
  - Aspartate aminotransferase increased [Unknown]
  - Limb injury [Unknown]
  - Productive cough [Unknown]
  - Headache [Recovered/Resolved]
  - Hypoaesthesia [Unknown]
  - Rhinalgia [Recovered/Resolved]
  - Abdominal pain upper [Unknown]
  - Depression [Unknown]
  - Blood glucose increased [Unknown]
  - Chest pain [Unknown]
  - Cough [Recovering/Resolving]
  - Musculoskeletal pain [Unknown]

NARRATIVE: CASE EVENT DATE: 20161117
